FAERS Safety Report 6881549-9 (Version None)
Quarter: 2010Q3

REPORT INFORMATION
  Report Type: 
  Country: None (occurrence: None)
  Receive Date: 20100729
  Receipt Date: 20100727
  Transmission Date: 20110219
  Serious: Yes (Other)
  Sender: FDA-Public Use
  Company Number: DE-BIOGENIDEC-2010BI025354

PATIENT
  Age: 35 Year
  Sex: Female
  Weight: 103 kg

DRUGS (1)
  1. AVONEX [Suspect]
     Indication: MULTIPLE SCLEROSIS
     Route: 030

REACTIONS (3)
  - CARTILAGE INJURY [None]
  - LIGAMENT RUPTURE [None]
  - SPORTS INJURY [None]
